FAERS Safety Report 10186153 (Version 3)
Quarter: 2014Q3

REPORT INFORMATION
  Report Type: Spontaneous
  Country: AU (occurrence: AU)
  Receive Date: 20140521
  Receipt Date: 20140923
  Transmission Date: 20150326
  Serious: Yes (Other)
  Sender: FDA-Public Use
  Company Number: ALCN2014AU003034

PATIENT
  Age: 47 Year
  Sex: Male

DRUGS (3)
  1. TIMOLOL [Suspect]
     Active Substance: TIMOLOL
     Indication: INTRAOCULAR PRESSURE INCREASED
     Dosage: UNK, BID
     Route: 047
  2. TRIESENCE [Suspect]
     Active Substance: TRIAMCINOLONE ACETONIDE
     Indication: DIABETIC RETINOPATHY
     Dosage: 40 UNK, UNK
     Route: 065
  3. BRINZOLAMIDE [Suspect]
     Active Substance: BRINZOLAMIDE
     Indication: INTRAOCULAR PRESSURE INCREASED
     Dosage: UNK, BID
     Route: 047

REACTIONS (3)
  - Drug ineffective [Unknown]
  - Cystoid macular oedema [Unknown]
  - Intraocular pressure increased [Recovering/Resolving]
